FAERS Safety Report 25756561 (Version 1)
Quarter: 2025Q3

REPORT INFORMATION
  Report Type: Report from Study
  Country: PK (occurrence: PK)
  Receive Date: 20250903
  Receipt Date: 20250903
  Transmission Date: 20251020
  Serious: Yes (Death, Disabling, Other)
  Sender: MYLAN
  Company Number: PK-MYLANLABS-2025M1074569

PATIENT
  Age: 20 Year
  Sex: Male
  Weight: 43 kg

DRUGS (20)
  1. PRETOMANID [Suspect]
     Active Substance: PRETOMANID
     Indication: Tuberculosis
     Dosage: 200 MILLIGRAM, QD (200MG/PO/DAY)
     Dates: start: 20250408
  2. PRETOMANID [Suspect]
     Active Substance: PRETOMANID
     Dosage: 200 MILLIGRAM, QD (200MG/PO/DAY)
     Route: 048
     Dates: start: 20250408
  3. PRETOMANID [Suspect]
     Active Substance: PRETOMANID
     Dosage: 200 MILLIGRAM, QD (200MG/PO/DAY)
     Route: 048
     Dates: start: 20250408
  4. PRETOMANID [Suspect]
     Active Substance: PRETOMANID
     Dosage: 200 MILLIGRAM, QD (200MG/PO/DAY)
     Dates: start: 20250408
  5. LINEZOLID [Suspect]
     Active Substance: LINEZOLID
     Indication: Tuberculosis
     Dosage: 600 MILLIGRAM, QD (DAILY)
     Dates: start: 20250408, end: 20250830
  6. LINEZOLID [Suspect]
     Active Substance: LINEZOLID
     Dosage: 600 MILLIGRAM, QD (DAILY)
     Route: 048
     Dates: start: 20250408, end: 20250830
  7. LINEZOLID [Suspect]
     Active Substance: LINEZOLID
     Dosage: 600 MILLIGRAM, QD (DAILY)
     Route: 048
     Dates: start: 20250408, end: 20250830
  8. LINEZOLID [Suspect]
     Active Substance: LINEZOLID
     Dosage: 600 MILLIGRAM, QD (DAILY)
     Dates: start: 20250408, end: 20250830
  9. BEDAQUILINE [Suspect]
     Active Substance: BEDAQUILINE
     Indication: Tuberculosis
     Dosage: 200 MILLIGRAM, 3XW (THRICE A WEEK)
     Dates: start: 20250408
  10. BEDAQUILINE [Suspect]
     Active Substance: BEDAQUILINE
     Dosage: 200 MILLIGRAM, 3XW (THRICE A WEEK)
     Route: 048
     Dates: start: 20250408
  11. BEDAQUILINE [Suspect]
     Active Substance: BEDAQUILINE
     Dosage: 200 MILLIGRAM, 3XW (THRICE A WEEK)
     Route: 048
     Dates: start: 20250408
  12. BEDAQUILINE [Suspect]
     Active Substance: BEDAQUILINE
     Dosage: 200 MILLIGRAM, 3XW (THRICE A WEEK)
     Dates: start: 20250408
  13. MOXIFLOXACIN [Suspect]
     Active Substance: MOXIFLOXACIN
     Indication: Tuberculosis
     Dosage: 400 MILLIGRAM, QD
     Dates: start: 20250408
  14. MOXIFLOXACIN [Suspect]
     Active Substance: MOXIFLOXACIN
     Dosage: 400 MILLIGRAM, QD
     Route: 048
     Dates: start: 20250408
  15. MOXIFLOXACIN [Suspect]
     Active Substance: MOXIFLOXACIN
     Dosage: 400 MILLIGRAM, QD
     Route: 048
     Dates: start: 20250408
  16. MOXIFLOXACIN [Suspect]
     Active Substance: MOXIFLOXACIN
     Dosage: 400 MILLIGRAM, QD
     Dates: start: 20250408
  17. VITAMIN B6 [Concomitant]
     Active Substance: PYRIDOXINE HYDROCHLORIDE
     Indication: Prophylaxis
     Dosage: 50 MILLIGRAM, QD
     Dates: start: 20250408
  18. VITAMIN B6 [Concomitant]
     Active Substance: PYRIDOXINE HYDROCHLORIDE
     Dosage: 50 MILLIGRAM, QD
     Route: 048
     Dates: start: 20250408
  19. VITAMIN B6 [Concomitant]
     Active Substance: PYRIDOXINE HYDROCHLORIDE
     Dosage: 50 MILLIGRAM, QD
     Route: 048
     Dates: start: 20250408
  20. VITAMIN B6 [Concomitant]
     Active Substance: PYRIDOXINE HYDROCHLORIDE
     Dosage: 50 MILLIGRAM, QD
     Dates: start: 20250408

REACTIONS (1)
  - Optic neuritis [Fatal]

NARRATIVE: CASE EVENT DATE: 20250828
